FAERS Safety Report 21269885 (Version 2)
Quarter: 2022Q4

REPORT INFORMATION
  Report Type: Spontaneous
  Country: US (occurrence: US)
  Receive Date: 20220830
  Receipt Date: 20221010
  Transmission Date: 20230113
  Serious: No
  Sender: FDA-Public Use
  Company Number: US-BAYER-2022A120408

PATIENT
  Age: 16 Year
  Sex: Female

DRUGS (1)
  1. MIRENA [Suspect]
     Active Substance: LEVONORGESTREL
     Dosage: 20?G/DAY
     Route: 015
     Dates: start: 20220805, end: 20220805

REACTIONS (2)
  - Device physical property issue [None]
  - Device use issue [None]

NARRATIVE: CASE EVENT DATE: 20220805
